FAERS Safety Report 22251595 (Version 12)
Quarter: 2024Q1

REPORT INFORMATION
  Report Type: Report from Study
  Country: PT (occurrence: PT)
  Receive Date: 20230425
  Receipt Date: 20240220
  Transmission Date: 20240410
  Serious: Yes (Other)
  Sender: FDA-Public Use
  Company Number: PT-ABBVIE-4737821

PATIENT
  Age: 76 Year
  Sex: Male

DRUGS (3)
  1. VENETOCLAX [Suspect]
     Active Substance: VENETOCLAX
     Indication: Chronic lymphocytic leukaemia
     Dosage: FORM STRENGTH :100 MG? PATIENT WAS NOT NEAR PACKAGING
     Route: 048
     Dates: start: 202210, end: 20230417
  2. VENETOCLAX [Suspect]
     Active Substance: VENETOCLAX
     Indication: Chronic lymphocytic leukaemia
     Dosage: FORM STRENGTH WAS100 MILLIGRAM? PATIENT WAS NOT NEAR PACKAGING
     Route: 048
     Dates: start: 20230501, end: 20230630
  3. VENETOCLAX [Suspect]
     Active Substance: VENETOCLAX
     Indication: Chronic lymphocytic leukaemia
     Dosage: FORM STRENGTH WAS 100 MILLIGRAM? PATIENT WAS NOT NEAR PACKAGING
     Route: 048
     Dates: start: 20230705

REACTIONS (8)
  - Rib fracture [Recovered/Resolved]
  - Vitamin B12 increased [Recovered/Resolved]
  - Red blood cell count decreased [Recovered/Resolved]
  - Fall [Recovered/Resolved]
  - Blood iron decreased [Recovered/Resolved]
  - Muscular weakness [Recovered/Resolved]
  - Asthenia [Recovered/Resolved]
  - Platelet count decreased [Recovered/Resolved]

NARRATIVE: CASE EVENT DATE: 20230301
